FAERS Safety Report 10231195 (Version 3)
Quarter: 2014Q3

REPORT INFORMATION
  Report Type: Spontaneous
  Country: JP (occurrence: JP)
  Receive Date: 20140611
  Receipt Date: 20140714
  Transmission Date: 20150326
  Serious: Yes (Death)
  Sender: FDA-Public Use
  Company Number: JP-BRACCO-008157

PATIENT
  Age: 6 Year
  Sex: Female
  Weight: 19 kg

DRUGS (5)
  1. KLARICID [Concomitant]
     Active Substance: CLARITHROMYCIN
     Dates: start: 20140529
  2. FLOMOXEF [Concomitant]
     Active Substance: FLOMOXEF
     Route: 042
     Dates: start: 20140529
  3. IOPAMIRON [Suspect]
     Active Substance: IOPAMIDOL
     Indication: UROGRAM
     Route: 042
     Dates: start: 20140603, end: 20140603
  4. SOLITA-T3 [Concomitant]
     Active Substance: POTASSIUM CHLORIDE\SODIUM CHLORIDE\SODIUM LACTATE
     Dates: start: 20140529, end: 20140603
  5. LAC-B [Concomitant]
     Active Substance: BIFIDOBACTERIUM SPP.
     Dates: start: 20140531

REACTIONS (1)
  - Anaphylactic reaction [Fatal]

NARRATIVE: CASE EVENT DATE: 20140603
